FAERS Safety Report 10111159 (Version 1)
Quarter: 2014Q2

REPORT INFORMATION
  Report Type: Spontaneous
  Country: US (occurrence: None)
  Receive Date: 20140421
  Receipt Date: 20140421
  Transmission Date: 20141212
  Serious: No
  Sender: FDA-Public Use
  Company Number: AEGR000250

PATIENT
  Age: 70 Year
  Sex: Male
  Weight: 104.8 kg

DRUGS (3)
  1. JUXTAPID [Suspect]
     Indication: TYPE IIA HYPERLIPIDAEMIA
     Route: 048
     Dates: start: 20130910
  2. LIPITOR (ATORVASTATIN CALCIUM) [Concomitant]
  3. GLUCOSAMINE (ASCORBIC ACID, GLUCOSAMINE SULFATE) [Concomitant]

REACTIONS (2)
  - Arthralgia [None]
  - Myalgia [None]
